FAERS Safety Report 9194138 (Version 1)
Quarter: 2013Q1

REPORT INFORMATION
  Report Type: Other
  Country: GB (occurrence: GB)
  Receive Date: 20130327
  Receipt Date: 20130327
  Transmission Date: 20140127
  Serious: Yes (Other)
  Sender: FDA-Public Use
  Company Number: GB-WATSON-2013-04756

PATIENT
  Age: 29 Year
  Sex: Male

DRUGS (2)
  1. CITALOPRAM HYDROBROMIDE (UNKNOWN) [Suspect]
     Indication: PRODUCT USED FOR UNKNOWN INDICATION
     Dosage: 40 MG, UNKNOWN
     Route: 048
  2. CITALOPRAM HYDROBROMIDE (UNKNOWN) [Suspect]
     Dosage: 20 MG, UNKNOWN
     Route: 065
     Dates: end: 201202

REACTIONS (5)
  - Palpitations [Unknown]
  - Micturition urgency [Unknown]
  - Genital swelling [Unknown]
  - Constipation [Unknown]
  - Drug ineffective [Unknown]
